FAERS Safety Report 7420924-0 (Version None)
Quarter: 2011Q2

REPORT INFORMATION
  Report Type: 
  Country: None (occurrence: None)
  Receive Date: 20110418
  Receipt Date: 20110411
  Transmission Date: 20111010
  Serious: Yes (Death)
  Sender: FDA-Public Use
  Company Number: B0712812A

PATIENT
  Sex: Female
  Weight: 48 kg

DRUGS (24)
  1. MIRACLID [Suspect]
     Dosage: 100IU3 PER DAY
     Route: 042
     Dates: start: 20020204
  2. VANCOMYCIN [Concomitant]
     Dosage: 1G PER DAY
     Route: 042
     Dates: start: 20020131, end: 20020202
  3. GANCICLOVIR [Suspect]
     Dosage: 460MG PER DAY
     Route: 042
     Dates: start: 20020203
  4. PREDONINE [Concomitant]
     Dosage: 20MG PER DAY
     Route: 048
     Dates: start: 20011202
  5. DIFLUCAN [Concomitant]
     Dosage: 400MG PER DAY
     Route: 042
     Dates: start: 20020131
  6. CYCLOSPORINE [Suspect]
     Indication: IMMUNOSUPPRESSION
     Dosage: 67.5MG PER DAY
     Route: 065
     Dates: start: 20020204
  7. MEROPENEM [Suspect]
     Dosage: 2G PER DAY
     Route: 042
     Dates: start: 20020129
  8. LASTET [Concomitant]
     Indication: ALLOGENIC BONE MARROW TRANSPLANTATION THERAPY
     Dosage: 500MG PER DAY
     Route: 042
     Dates: start: 20020117, end: 20020118
  9. ZYLORIC [Concomitant]
     Dosage: 300MG PER DAY
     Route: 048
     Dates: start: 20020117
  10. CYCLOSPORINE [Suspect]
     Route: 065
     Dates: end: 20020212
  11. NOVANTRONE [Concomitant]
     Indication: ALLOGENIC BONE MARROW TRANSPLANTATION THERAPY
     Dosage: 10MG PER DAY
     Route: 042
     Dates: start: 20020119, end: 20020120
  12. FUNGIZONE [Concomitant]
     Dosage: 12ML PER DAY
     Route: 048
     Dates: start: 20010821
  13. CRAVIT [Concomitant]
     Dosage: 300MG PER DAY
     Route: 048
     Dates: start: 20020117
  14. VANCOMYCIN [Concomitant]
     Route: 042
     Dates: start: 20020212, end: 20020212
  15. NEU-UP [Concomitant]
     Route: 042
     Dates: start: 20020207, end: 20020212
  16. URSO 250 [Concomitant]
     Dosage: 600MG PER DAY
     Route: 048
     Dates: start: 20010920
  17. SELBEX [Concomitant]
     Dosage: 150MG PER DAY
     Route: 048
     Dates: start: 20010925
  18. ISONIAZID [Concomitant]
     Dosage: 400MG PER DAY
     Route: 048
     Dates: start: 20020117
  19. ALKERAN [Suspect]
     Indication: ALLOGENIC BONE MARROW TRANSPLANTATION THERAPY
     Dosage: 200MG PER DAY
     Route: 042
     Dates: start: 20020122, end: 20020122
  20. FUTHAN [Suspect]
     Dosage: 200MG PER DAY
     Route: 042
     Dates: start: 20020210
  21. BAKTAR [Concomitant]
     Dosage: 1IUAX PER DAY
     Route: 048
     Dates: start: 20020203
  22. CYMERIN [Concomitant]
     Indication: ALLOGENIC BONE MARROW TRANSPLANTATION THERAPY
     Dosage: 300MG PER DAY
     Route: 042
     Dates: start: 20020119, end: 20020119
  23. CELLCEPT [Concomitant]
     Dosage: 1000MG PER DAY
     Route: 048
     Dates: start: 20011004
  24. ZOVIRAX [Concomitant]
     Dosage: 1000MG PER DAY
     Route: 048
     Dates: start: 20020117

REACTIONS (1)
  - CEREBRAL HAEMORRHAGE [None]
